FAERS Safety Report 21785273 (Version 1)
Quarter: 2022Q4

REPORT INFORMATION
  Report Type: Spontaneous
  Country: AU (occurrence: AU)
  Receive Date: 20221227
  Receipt Date: 20221227
  Transmission Date: 20230113
  Serious: Yes (Other)
  Sender: FDA-Public Use
  Company Number: AU-GLAXOSMITHKLINE-AU2022APC146352

PATIENT
  Age: 45 Year
  Sex: Female

DRUGS (4)
  1. AMBRISENTAN [Suspect]
     Active Substance: AMBRISENTAN
     Indication: Product used for unknown indication
     Dosage: 10 MG, QD
     Route: 048
  2. FLOLAN [Suspect]
     Active Substance: EPOPROSTENOL SODIUM
     Indication: Product used for unknown indication
     Dosage: 1.5 MG
     Route: 065
  3. SILDENAFIL [Suspect]
     Active Substance: SILDENAFIL
     Indication: Product used for unknown indication
     Dosage: 45 MG, TID
     Route: 048
  4. SILDENAFIL [Suspect]
     Active Substance: SILDENAFIL
     Dosage: 50 MG, TID
     Route: 048

REACTIONS (3)
  - Heart transplant [Unknown]
  - Lung transplant [Unknown]
  - Gout [Unknown]

NARRATIVE: CASE EVENT DATE: 20221216
